FAERS Safety Report 5153701-4 (Version None)
Quarter: 2006Q4

REPORT INFORMATION
  Report Type: 
  Country: None (occurrence: None)
  Receive Date: 20061114
  Receipt Date: 20061027
  Transmission Date: 20070319
  Serious: Yes (Other)
  Sender: FDA-Public Use
  Company Number: 5199

PATIENT
  Age: 75 Year
  Sex: Female

DRUGS (13)
  1. PACLITAXEL [Suspect]
     Indication: OVARIAN EPITHELIAL CANCER STAGE IV
     Dosage: 175 MG/M2 PER_CYCLE
     Route: 042
  2. PACLITAXEL [Suspect]
     Indication: OVARIAN EPITHELIAL CANCER STAGE IV
     Dosage: 135 MG/M2 PER_CYCLE
     Route: 042
  3. WARFARIN SODIUM [Suspect]
     Indication: DEEP VEIN THROMBOSIS
     Dosage: 2 MG DAILY PO
     Route: 048
  4. WARFARIN SODIUM [Suspect]
     Indication: PLEURAL EFFUSION
     Dosage: 2 MG DAILY PO
     Route: 048
  5. WARFARIN SODIUM [Suspect]
     Dosage: 5 MG DAILY PO
     Route: 048
  6. WARFARIN SODIUM [Suspect]
     Indication: DEEP VEIN THROMBOSIS
  7. WARFARIN SODIUM [Suspect]
     Indication: PLEURAL EFFUSION
  8. CARBOPLATIN [Concomitant]
  9. RANITIDINE [Concomitant]
  10. DEXAMETHASONE TAB [Concomitant]
  11. ONDANSETRON [Concomitant]
  12. CIMETIDINE [Concomitant]
  13. CHLORPHENIRAMINE MALEATE [Concomitant]

REACTIONS (3)
  - DRUG INTERACTION [None]
  - INTERNATIONAL NORMALISED RATIO INCREASED [None]
  - THROMBOCYTOPENIA [None]
